FAERS Safety Report 8809492 (Version 2)
Quarter: 2013Q1

REPORT INFORMATION
  Report Type: Spontaneous
  Country: US (occurrence: US)
  Receive Date: 20120926
  Receipt Date: 20121126
  Transmission Date: 20140127
  Serious: Yes (Life-Threatening, Hospitalization, Disabling)
  Sender: FDA-Public Use
  Company Number: US-ASTRAZENECA-2012SE72542

PATIENT
  Age: 18409 Day
  Sex: Male

DRUGS (14)
  1. LISINOPRIL [Suspect]
     Indication: HYPERTENSION
     Route: 048
     Dates: start: 20120906, end: 20120910
  2. BISACODYL [Suspect]
     Indication: CONSTIPATION
     Route: 048
     Dates: start: 20110920
  3. STUDY PROCEDURE [Suspect]
     Indication: CONSTIPATION
     Route: 065
  4. CLONIDINE [Concomitant]
     Indication: HYPERTENSION
     Route: 048
     Dates: end: 20120906
  5. CLONIDINE [Concomitant]
     Indication: HYPERTENSION
     Route: 048
     Dates: start: 20120914
  6. METHOCARBAMOL [Concomitant]
     Indication: MUSCLE TIGHTNESS
     Route: 048
  7. VALIUM [Concomitant]
     Indication: PAIN
     Route: 048
  8. PRAVASTAT [Concomitant]
     Indication: HYPERCHOLESTEROLAEMIA
     Dosage: DAILY
     Route: 048
     Dates: start: 2011
  9. ESOMEPRAZOLE [Concomitant]
     Indication: GASTROOESOPHAGEAL REFLUX DISEASE
     Route: 048
     Dates: start: 20111004
  10. TINACTIN [Concomitant]
     Indication: ONYCHOMYCOSIS
     Route: 003
     Dates: start: 20120621
  11. LASIX [Concomitant]
     Indication: HYPERTENSION
     Route: 048
     Dates: start: 20120621
  12. LASIX [Concomitant]
     Indication: OEDEMA PERIPHERAL
     Route: 048
     Dates: start: 20120621
  13. OXYCODONE [Concomitant]
     Indication: BACK PAIN
     Route: 048
     Dates: start: 20111116
  14. MSER [Concomitant]
     Indication: BACK PAIN
     Route: 048
     Dates: start: 20120213

REACTIONS (6)
  - Sepsis [Recovered/Resolved]
  - Colitis ischaemic [Recovered/Resolved]
  - Small intestinal obstruction [Recovered/Resolved]
  - Drug hypersensitivity [Recovered/Resolved]
  - Renal failure acute [Recovered/Resolved]
  - Hyperkalaemia [Recovered/Resolved]
